FAERS Safety Report 24561516 (Version 1)
Quarter: 2024Q4

REPORT INFORMATION
  Report Type: Spontaneous
  Country: US (occurrence: None)
  Receive Date: 20241029
  Receipt Date: 20241029
  Transmission Date: 20250115
  Serious: Yes (Other)
  Sender: Public
  Company Number: None

PATIENT
  Sex: Female

DRUGS (11)
  1. PROLIA [Suspect]
     Active Substance: DENOSUMAB
     Indication: Osteoporosis
     Route: 058
  2. CALCIUM TAB 600MG [Concomitant]
  3. COQ10 CAP 100MG [Concomitant]
  4. POTASSIUM POW CHLORIDE [Concomitant]
  5. SIMETHICONE CHW 80MG [Concomitant]
  6. TOPIRAMATE TAB 50MG [Concomitant]
  7. TURMERIC CAP 500MG [Concomitant]
  8. VITAMIN B1 TAB 100MG [Concomitant]
  9. VITAMIN B12 TAB 100MCG [Concomitant]
  10. VITAMIN C TAB 500MG [Concomitant]
  11. VITAMIN D CAP 50000UNT [Concomitant]

REACTIONS (1)
  - Lung neoplasm malignant [None]
